FAERS Safety Report 11142017 (Version 1)
Quarter: 2015Q2

REPORT INFORMATION
  Report Type: Spontaneous
  Country: US (occurrence: None)
  Receive Date: 20150526
  Receipt Date: 20150526
  Transmission Date: 20150821
  Serious: Yes (Other)
  Sender: FDA-Public Use
  Company Number: None

PATIENT
  Age: 36 Year
  Sex: Female
  Weight: 63.5 kg

DRUGS (2)
  1. MULTI VITAMINS [Concomitant]
  2. BOTOX [Suspect]
     Active Substance: ONABOTULINUMTOXINA
     Dosage: 55 UNITS AS NEEDED --

REACTIONS (4)
  - Headache [None]
  - Eyelid ptosis [None]
  - Head discomfort [None]
  - Dry eye [None]

NARRATIVE: CASE EVENT DATE: 20150519
